FAERS Safety Report 5315711-3 (Version None)
Quarter: 2007Q2

REPORT INFORMATION
  Report Type: 
  Country: None (occurrence: None)
  Receive Date: 20070430
  Receipt Date: 20070430
  Transmission Date: 20071010
  Serious: No
  Sender: FDA-Public Use
  Company Number: None

PATIENT
  Age: 76 Year
  Sex: Female
  Weight: 90.7194 kg

DRUGS (2)
  1. MELOXICAM [Suspect]
     Indication: OSTEOARTHRITIS
     Dosage: 7.5MG 1 BID PO
     Route: 048
     Dates: start: 20070320, end: 20070325
  2. MELOXICAM [Suspect]
     Dosage: 7.5MG 1 BID PO
     Route: 048
     Dates: start: 20061219, end: 20061225

REACTIONS (2)
  - DRUG EFFECT DECREASED [None]
  - THERAPEUTIC RESPONSE UNEXPECTED WITH DRUG SUBSTITUTION [None]
